FAERS Safety Report 18325903 (Version 1)
Quarter: 2020Q3

REPORT INFORMATION
  Report Type: Spontaneous
  Country: US (occurrence: US)
  Receive Date: 20200929
  Receipt Date: 20200929
  Transmission Date: 20201103
  Serious: No
  Sender: FDA-Public Use
  Company Number: US-PFIZER INC-2020373362

PATIENT
  Age: 32 Year
  Sex: Male

DRUGS (1)
  1. ZIPRASIDONE HCL [Suspect]
     Active Substance: ZIPRASIDONE HYDROCHLORIDE
     Indication: SCHIZOPHRENIA
     Dosage: UNK, 2X/DAY (80 IN THE MORNING AND 80 AT NIGHT)
     Dates: start: 202005

REACTIONS (5)
  - Product dose omission issue [Unknown]
  - General physical health deterioration [Unknown]
  - Dehydration [Not Recovered/Not Resolved]
  - Musculoskeletal chest pain [Unknown]
  - Feeling hot [Unknown]
